FAERS Safety Report 4811759-3 (Version None)
Quarter: 2005Q4

REPORT INFORMATION
  Report Type: 
  Country: None (occurrence: None)
  Receive Date: 20051028
  Receipt Date: 20020730
  Transmission Date: 20060501
  Serious: Yes (Hospitalization)
  Sender: FDA-Public Use
  Company Number: GB-2002-BP-03634BP

PATIENT
  Sex: Male
  Weight: 62 kg

DRUGS (8)
  1. MICARDIS [Suspect]
     Indication: CARDIAC DISORDER
     Route: 048
     Dates: start: 20020101
  2. MICARDIS [Suspect]
     Indication: CEREBROVASCULAR ACCIDENT PROPHYLAXIS
  3. RAMIPRIL [Suspect]
     Indication: CARDIAC DISORDER
     Route: 048
     Dates: start: 20020101
  4. RAMIPRIL [Suspect]
     Indication: CEREBROVASCULAR ACCIDENT PROPHYLAXIS
  5. ATENOLOL [Concomitant]
     Dates: end: 20020101
  6. ASPIRIN [Concomitant]
  7. CIMETIDINE [Concomitant]
  8. ATORVASTATIN CALCIUM [Concomitant]

REACTIONS (1)
  - HYPOTENSION [None]
